FAERS Safety Report 15545447 (Version 2)
Quarter: 2018Q4

REPORT INFORMATION
  Report Type: Spontaneous
  Country: US (occurrence: US)
  Receive Date: 20181024
  Receipt Date: 20181024
  Transmission Date: 20190205
  Serious: Yes (Other)
  Sender: FDA-Public Use
  Company Number: US-GILEAD-2018-0370066

PATIENT
  Sex: Male

DRUGS (1)
  1. RANEXA [Suspect]
     Active Substance: RANOLAZINE
     Indication: ARRHYTHMIA
     Dosage: 500 MG, BID
     Route: 065

REACTIONS (3)
  - Off label use [Not Recovered/Not Resolved]
  - Ileostomy [Unknown]
  - Functional gastrointestinal disorder [Not Recovered/Not Resolved]
